FAERS Safety Report 20760079 (Version 4)
Quarter: 2022Q2

REPORT INFORMATION
  Report Type: Report from Study
  Country: AU (occurrence: AU)
  Receive Date: 20220428
  Receipt Date: 20220615
  Transmission Date: 20220721
  Serious: Yes (Death, Other)
  Sender: FDA-Public Use
  Company Number: AU-AMGEN-AUSCT2022072651

PATIENT
  Age: 12 Year
  Sex: Male

DRUGS (14)
  1. CARFILZOMIB [Suspect]
     Active Substance: CARFILZOMIB
     Indication: Acute lymphocytic leukaemia
     Dosage: 104 MILLIGRAM
     Route: 042
     Dates: start: 20220405
  2. DEXAMETHASONE [Concomitant]
     Active Substance: DEXAMETHASONE
     Dosage: 5.56 MILLIGRAM
     Dates: start: 20220405, end: 20220423
  3. VINCRISTINE [Concomitant]
     Active Substance: VINCRISTINE
     Dosage: 2 MILLIGRAM
     Dates: start: 20220405, end: 20220419
  4. DAUNORUBICIN [Concomitant]
     Active Substance: DAUNORUBICIN
     Dosage: 112 MILLIGRAM
     Dates: start: 20220407, end: 20220407
  5. PEG/L-ASPARAGINASE [Concomitant]
     Active Substance: PEGASPARGASE
     Dosage: 9200 UNK
     Dates: start: 20220408, end: 20220408
  6. OMEPRAZOLE [Concomitant]
     Active Substance: OMEPRAZOLE
     Dosage: 20 MILLIGRAM
     Route: 048
     Dates: start: 20220414, end: 20220414
  7. AMIKACIN [Concomitant]
     Active Substance: AMIKACIN
     Dosage: 1350 MILLIGRAM
     Route: 042
     Dates: start: 20220408, end: 20220423
  8. CETIRIZINE [Concomitant]
     Active Substance: CETIRIZINE HYDROCHLORIDE
     Dosage: 10 MILLIGRAM
     Route: 048
     Dates: start: 20211007, end: 20220419
  9. HYDROCORTISONE [Concomitant]
     Active Substance: HYDROCORTISONE
     Dosage: 15-78 MILLIGRAM
     Dates: start: 20220404, end: 20220419
  10. CLONIDINE [Concomitant]
     Active Substance: CLONIDINE
     Dosage: 50 MICROGRAM
     Route: 048
     Dates: start: 20220410, end: 20220423
  11. CYTARABINE [Concomitant]
     Active Substance: CYTARABINE
     Dosage: 30 MILLIGRAM
     Route: 037
     Dates: start: 20220404, end: 20220419
  12. METHOTREXATE [Concomitant]
     Active Substance: METHOTREXATE
     Dosage: 6.25-15 MILLIGRAM
     Route: 037
     Dates: start: 20220404, end: 20220419
  13. ASPARAGINASE [Concomitant]
     Active Substance: ASPARAGINASE
     Dosage: 9200 UNK
     Dates: start: 20220408, end: 20220419
  14. NOVORAPID [Concomitant]
     Active Substance: INSULIN ASPART
     Dosage: 25 UNK
     Route: 058
     Dates: start: 20220409, end: 20220411

REACTIONS (1)
  - Sepsis syndrome [Fatal]

NARRATIVE: CASE EVENT DATE: 20220423
